FAERS Safety Report 9466894 (Version 2)
Quarter: 2013Q3

REPORT INFORMATION
  Report Type: Spontaneous
  Country: US (occurrence: US)
  Receive Date: 20130820
  Receipt Date: 20130821
  Transmission Date: 20140515
  Serious: Yes (Hospitalization)
  Sender: FDA-Public Use
  Company Number: US-BAXTER-2013BAX032330

PATIENT
  Age: 86 Year
  Sex: Male

DRUGS (4)
  1. DIANEAL LOW CALCIUM [Suspect]
     Indication: RENAL FAILURE CHRONIC
     Dosage: 5 LITERS OVER 8 HOURS
     Route: 033
     Dates: start: 201210, end: 20130608
  2. DIANEAL LOW CALCIUM [Suspect]
     Route: 033
     Dates: start: 20130812
  3. DIANEAL LOW CALCIUM (ULTRABAG) [Suspect]
     Indication: RENAL FAILURE CHRONIC
     Dosage: 5 LITERS OVER 8 HOURS
     Route: 033
     Dates: start: 201210, end: 20130608
  4. DIANEAL LOW CALCIUM (ULTRABAG) [Suspect]
     Route: 033
     Dates: start: 20130812

REACTIONS (1)
  - Abdominal hernia [Recovered/Resolved]
